FAERS Safety Report 9728563 (Version 1)
Quarter: 2013Q4

REPORT INFORMATION
  Report Type: Spontaneous
  Country: LB (occurrence: None)
  Receive Date: 20131202
  Receipt Date: 20131202
  Transmission Date: 20140711
  Serious: Yes (Hospitalization)
  Sender: FDA-Public Use
  Company Number: SYM-2013-13357

PATIENT
  Age: 68 Year
  Sex: Male

DRUGS (4)
  1. 5 FU (FLUOROURACIL) [Suspect]
     Indication: COLORECTAL CANCER METASTATIC
     Dosage: 400 MG/M2, EVERY OTHER WEEK, INTRAVENOUS BOLUS
     Route: 040
     Dates: start: 20130919, end: 20130919
  2. AFLIBERCEPT (AFLIBERCEPT) (SOLUTION FOR INFUSION) (AFLIBERCEPT) [Suspect]
     Indication: COLORECTAL CANCER METASTATIC
     Dosage: EVERY OTHER WEEK, INTRAVENOUS DRIP
     Route: 041
     Dates: start: 20130919, end: 20130919
  3. IRINOTECAN [Suspect]
     Indication: COLORECTAL CANCER METASTATIC
     Dosage: 180 MG/M2, EVERY OTHER WEEK, INTRAVENOUS DRIP
     Route: 041
     Dates: start: 20130919, end: 20130919
  4. LEUCOVORIN (FOLINIC ACID) (SOLUTION FOR INFUSION) (FOLINIC ACID) [Suspect]
     Indication: COLORECTAL CANCER METASTATIC
     Dosage: 400 MG/M2, EVERY OTHER WEEK, INTRAVENOUS DRIP
     Route: 041
     Dates: start: 20130919, end: 20130919

REACTIONS (1)
  - Gastroenteritis [None]
